FAERS Safety Report 15601199 (Version 2)
Quarter: 2018Q4

REPORT INFORMATION
  Report Type: Spontaneous
  Country: US (occurrence: US)
  Receive Date: 20181109
  Receipt Date: 20181130
  Transmission Date: 20190205
  Serious: No
  Sender: FDA-Public Use
  Company Number: US-PFIZER INC-2018449096

PATIENT
  Age: 49 Year
  Sex: Male
  Weight: 108.86 kg

DRUGS (2)
  1. VIAGRA [Suspect]
     Active Substance: SILDENAFIL CITRATE
     Indication: ERECTILE DYSFUNCTION
     Dosage: 25 MG, 1X/DAY
     Route: 048
     Dates: start: 201806
  2. VIAGRA [Suspect]
     Active Substance: SILDENAFIL CITRATE
     Dosage: 25 MG, AS NEEDED
     Route: 048
     Dates: start: 201806

REACTIONS (2)
  - Erection increased [Not Recovered/Not Resolved]
  - Ejaculation disorder [Recovering/Resolving]

NARRATIVE: CASE EVENT DATE: 201807
